FAERS Safety Report 10361470 (Version 3)
Quarter: 2014Q4

REPORT INFORMATION
  Report Type: Spontaneous
  Country: ES (occurrence: ES)
  Receive Date: 20140805
  Receipt Date: 20141029
  Transmission Date: 20150528
  Serious: Yes (Death)
  Sender: FDA-Public Use
  Company Number: ES-BIOGENIDEC-2014BI073340

PATIENT
  Age: 36 Year
  Sex: Female

DRUGS (2)
  1. PREGABALIN. [Concomitant]
     Active Substance: PREGABALIN
  2. TYSABRI [Suspect]
     Active Substance: NATALIZUMAB
     Indication: RELAPSING-REMITTING MULTIPLE SCLEROSIS
     Route: 042
     Dates: start: 201201, end: 20140605

REACTIONS (3)
  - Cardio-respiratory arrest [Fatal]
  - Pneumonia aspiration [Fatal]
  - Completed suicide [Fatal]

NARRATIVE: CASE EVENT DATE: 20140722
